FAERS Safety Report 4752892-4 (Version None)
Quarter: 2005Q3

REPORT INFORMATION
  Report Type: 
  Country: None (occurrence: None)
  Receive Date: 20050714
  Receipt Date: 20050422
  Transmission Date: 20060218
  Serious: Yes (Hospitalization, Other)
  Sender: FDA-Public Use
  Company Number: 200512595US

PATIENT
  Age: 55 Year
  Sex: Female

DRUGS (26)
  1. TAXOTERE [Suspect]
     Indication: BREAST CANCER
     Dosage: 75 (20MG VIAL) MG/M**2 QMTH
     Dates: start: 20041019, end: 20041019
  2. TAXOTERE [Suspect]
     Indication: BREAST CANCER
     Dosage: 75 (80MG VIAL) MG/M**2 GMTH
     Dates: start: 20041019, end: 20041019
  3. TAXOTERE [Suspect]
     Indication: BREAST CANCER
     Dosage: 75 (20MG VIAL) MG/M**2 QMTH
     Dates: start: 20041109, end: 20041109
  4. TAXOTERE [Suspect]
     Indication: BREAST CANCER
     Dosage: 75 (80MG VIAL) MG/M**2 QMTH
     Dates: start: 20041109, end: 20041109
  5. TAXOTERE [Suspect]
     Indication: BREAST CANCER
     Dosage: 75 (20MG VIAL) MG/M**2 QMTH
     Dates: start: 20041130, end: 20041130
  6. TAXOTERE [Suspect]
     Indication: BREAST CANCER
     Dosage: 75 (80MG VIAL) MG/M**2 QMTH
     Dates: start: 20041130, end: 20041130
  7. TAXOTERE [Suspect]
     Indication: BREAST CANCER
     Dosage: 75 (20MG VIAL) MG/M**2 QMTH
     Dates: start: 20041220, end: 20041220
  8. TAXOTERE [Suspect]
     Indication: BREAST CANCER
     Dosage: 75 (80MG VIAL) MG/M**2 QMTH
     Dates: start: 20041220, end: 20041220
  9. DOXORUBICIN HCL [Concomitant]
  10. CYTOXAN [Concomitant]
  11. WARFARIN SODIUM [Concomitant]
  12. FOSAMAX [Concomitant]
  13. ERGOCALCIFEROL, ASCORBIC ACID, FOLIC ACID, THIAMINE HYDROCHLORIDE, RET [Concomitant]
  14. PANTHENOL (MULTIVITAMINS) [Concomitant]
  15. CALCIUM CARBONATE (CITRICAL) [Concomitant]
  16. DECADRON [Concomitant]
  17. FUROSEMIDE [Concomitant]
  18. HYOSCYAMINE SULFATE (LEVSIN) [Concomitant]
  19. METOCLOPRAMIDE [Concomitant]
  20. ALLEGRA [Concomitant]
  21. FAMOTIDINE [Concomitant]
  22. DEMADEX [Concomitant]
  23. PREDNISONE TAB [Concomitant]
  24. POTASSIUM CHLORIDE [Concomitant]
  25. EFFEXOR [Concomitant]
  26. NEURONTIN [Concomitant]

REACTIONS (6)
  - FEBRILE NEUTROPENIA [None]
  - OEDEMA PERIPHERAL [None]
  - PHLEBITIS [None]
  - RASH ERYTHEMATOUS [None]
  - THROMBOPHLEBITIS [None]
  - URINARY TRACT INFECTION [None]
